FAERS Safety Report 18257073 (Version 1)
Quarter: 2020Q3

REPORT INFORMATION
  Report Type: Other
  Country: IT (occurrence: IT)
  Receive Date: 20200911
  Receipt Date: 20200911
  Transmission Date: 20201103
  Serious: Yes (Other)
  Sender: FDA-Public Use
  Company Number: IT-ROCHE-2675004

PATIENT
  Age: 54 Year
  Sex: Female

DRUGS (2)
  1. BIKTARVY [Concomitant]
     Active Substance: BICTEGRAVIR SODIUM\EMTRICITABINE\TENOFOVIR ALAFENAMIDE FUMARATE
  2. RIVOTRIL [Suspect]
     Active Substance: CLONAZEPAM
     Indication: INTENTIONAL SELF-INJURY
     Route: 048
     Dates: start: 20200726, end: 20200726

REACTIONS (2)
  - Psychomotor hyperactivity [Recovering/Resolving]
  - Substance abuse [Unknown]

NARRATIVE: CASE EVENT DATE: 20200726
